FAERS Safety Report 18114780 (Version 1)
Quarter: 2020Q3

REPORT INFORMATION
  Report Type: Spontaneous
  Country: US (occurrence: US)
  Receive Date: 20200805
  Receipt Date: 20200805
  Transmission Date: 20201103
  Serious: No
  Sender: FDA-Public Use
  Company Number: US-PFIZER INC-2020296161

PATIENT
  Age: 49 Year
  Sex: Female

DRUGS (2)
  1. BRAFTOVI [Suspect]
     Active Substance: ENCORAFENIB
     Indication: ANAPLASTIC ASTROCYTOMA
     Dosage: 450 MG
  2. MEKTOVI [Suspect]
     Active Substance: BINIMETINIB
     Indication: ANAPLASTIC ASTROCYTOMA
     Dosage: 45 MG

REACTIONS (2)
  - Off label use [Unknown]
  - Product use in unapproved indication [Unknown]
